FAERS Safety Report 22235280 (Version 1)
Quarter: 2023Q2

REPORT INFORMATION
  Report Type: Spontaneous
  Country: US (occurrence: None)
  Receive Date: 20230419
  Receipt Date: 20230419
  Transmission Date: 20230722
  Serious: Yes (Other)
  Sender: FDA-Public Use
  Company Number: None

PATIENT
  Age: 59 Year
  Sex: Female

DRUGS (21)
  1. AMBRISENTAN [Suspect]
     Active Substance: AMBRISENTAN
     Indication: Pulmonary arterial hypertension
     Dosage: FREQUENCY : DAILY;?
     Route: 048
     Dates: start: 20140725
  2. TADALAFIL [Concomitant]
     Active Substance: TADALAFIL
  3. OMEPRAZOLE [Concomitant]
     Active Substance: OMEPRAZOLE
  4. SIMVASTATIN [Concomitant]
  5. COLCHICINE [Concomitant]
  6. ZOLPIDEM [Concomitant]
     Active Substance: ZOLPIDEM TARTRATE
  7. FERROUS SULFATE [Concomitant]
     Active Substance: FERROUS SULFATE
  8. MAGNESIUM OXIDE [Concomitant]
     Active Substance: MAGNESIUM OXIDE
  9. POTASSIUM [Concomitant]
  10. FUROSEMIDE [Concomitant]
     Active Substance: FUROSEMIDE
  11. ALBUTEROL SULFATE [Concomitant]
     Active Substance: ALBUTEROL SULFATE
  12. mometasone top oin [Concomitant]
  13. diclofenac top gel [Concomitant]
  14. narcon [Concomitant]
  15. UNSPECIFIED INGREDIENT [Concomitant]
     Active Substance: UNSPECIFIED INGREDIENT
  16. PERCOCET [Concomitant]
     Active Substance: ACETAMINOPHEN\OXYCODONE HYDROCHLORIDE
  17. METOLAZONE [Concomitant]
  18. GLIPIZIDE [Concomitant]
  19. EPLERENONE [Concomitant]
     Active Substance: EPLERENONE
  20. ATROVENT [Concomitant]
     Active Substance: IPRATROPIUM BROMIDE
  21. HYDROXYCHLOROQUINE [Concomitant]

REACTIONS (10)
  - Dyspnoea [None]
  - Palpitations [None]
  - Chest discomfort [None]
  - Pain [None]
  - Chills [None]
  - Diarrhoea [None]
  - COVID-19 [None]
  - Influenza [None]
  - Hypomagnesaemia [None]
  - Hypokalaemia [None]

NARRATIVE: CASE EVENT DATE: 20230329
